FAERS Safety Report 9040944 (Version 1)
Quarter: 2013Q1

REPORT INFORMATION
  Report Type: Spontaneous
  Country: US (occurrence: None)
  Receive Date: 20130123
  Receipt Date: 20130123
  Transmission Date: 20140127
  Serious: Yes (Hospitalization)
  Sender: FDA-Public Use
  Company Number: None

PATIENT
  Sex: Male
  Weight: 87.5 kg

DRUGS (1)
  1. DECITABINE (5-AZA-2^-DEOXYCYTIDINE) [Suspect]
     Dates: end: 20121218

REACTIONS (2)
  - Fatigue [None]
  - Dyspnoea exertional [None]
